FAERS Safety Report 22392248 (Version 1)
Quarter: 2023Q2

REPORT INFORMATION
  Report Type: Spontaneous
  Country: US (occurrence: US)
  Receive Date: 20230601
  Receipt Date: 20230601
  Transmission Date: 20230721
  Serious: Yes (Death, Hospitalization, Other)
  Sender: FDA-Public Use
  Company Number: US-AVET LIFESCIENCES LTD-2023-AVET-000141

PATIENT
  Age: 70 Year
  Sex: Male

DRUGS (2)
  1. HYDROCHLOROTHIAZIDE [Suspect]
     Active Substance: HYDROCHLOROTHIAZIDE
     Indication: Product used for unknown indication
     Dosage: UNK, AROUND10 YEARS
     Route: 065
  2. ALOGLIPTIN [Suspect]
     Active Substance: ALOGLIPTIN
     Indication: Product used for unknown indication
     Dosage: UNK SINCE 4 YEARS
     Route: 065

REACTIONS (4)
  - Pancreatitis necrotising [Fatal]
  - Metabolic acidosis [Fatal]
  - Respiratory failure [Fatal]
  - Renal failure [Fatal]
